FAERS Safety Report 9779913 (Version 2)
Quarter: 2013Q4

REPORT INFORMATION
  Report Type: Report from Study
  Country: US (occurrence: US)
  Receive Date: 20131223
  Receipt Date: 20131223
  Transmission Date: 20140711
  Serious: Yes (Other)
  Sender: FDA-Public Use
  Company Number: US-MYLANLABS-2013S1028537

PATIENT
  Age: 16 Year
  Sex: Male

DRUGS (5)
  1. AMNESTEEM CAPSULES [Suspect]
     Indication: ACNE
     Route: 048
     Dates: end: 201310
  2. AMNESTEEM CAPSULES [Suspect]
     Indication: ACNE
     Route: 048
     Dates: end: 201310
  3. AMNESTEEM CAPSULES [Suspect]
     Indication: ACNE
     Route: 048
     Dates: start: 201310, end: 20131213
  4. CLARAVIS [Suspect]
     Indication: ACNE
  5. CLARAVIS [Suspect]
     Indication: ACNE

REACTIONS (4)
  - Suicidal ideation [Not Recovered/Not Resolved]
  - Intentional self-injury [Recovered/Resolved]
  - Depression [Not Recovered/Not Resolved]
  - Dry skin [Recovered/Resolved]
